FAERS Safety Report 8171319-6 (Version None)
Quarter: 2012Q1

REPORT INFORMATION
  Report Type: 
  Country: None (occurrence: None)
  Receive Date: 20120228
  Receipt Date: 20120216
  Transmission Date: 20120608
  Serious: No
  Sender: FDA-Public Use
  Company Number: US-B.I. PHARMACEUTICALS,INC./RIDGEFIELD-2012-BP-03091BP

PATIENT
  Sex: Female

DRUGS (4)
  1. SPIRIVA [Suspect]
     Indication: CHRONIC OBSTRUCTIVE PULMONARY DISEASE
     Dosage: 18 MCG
     Route: 055
     Dates: start: 20070701, end: 20100701
  2. SPIRIVA [Suspect]
     Dosage: 18 MCG
     Route: 055
     Dates: start: 20100801, end: 20100801
  3. MULTIVITAMIN [Concomitant]
     Indication: SUPPLEMENTATION THERAPY
     Route: 048
  4. SPIRIVA [Suspect]
     Dosage: 18 MCG
     Route: 055
     Dates: start: 20110801, end: 20111225

REACTIONS (4)
  - DRY EYE [None]
  - OCULAR HYPERAEMIA [None]
  - EYE DISCHARGE [None]
  - EYE SWELLING [None]
